FAERS Safety Report 6472453-9 (Version None)
Quarter: 2009Q4

REPORT INFORMATION
  Report Type: 
  Country: None (occurrence: None)
  Receive Date: 20091201
  Receipt Date: 20091006
  Transmission Date: 20100525
  Serious: Yes (Death, Congenital Anomaly, Other)
  Sender: FDA-Public Use
  Company Number: 2009US000591

PATIENT
  Age: 16 Day
  Sex: Female
  Weight: 1 kg

DRUGS (9)
  1. PROGRAF [Suspect]
     Indication: DRUG EXPOSURE DURING PREGNANCY
     Dosage: 3 MG, BID, ORAL
     Route: 048
  2. CELLCEPT [Concomitant]
  3. PRENATAL VITAMINS (TOCOPHEROL, NICOTINIC ACID, VITAMIN D NOS, MINERALS [Concomitant]
  4. ANTIBIOTICS [Concomitant]
  5. PREVACID [Concomitant]
  6. CYTOVENE [Concomitant]
  7. LITHIUM CARBONATE [Concomitant]
  8. RISPERDAL [Concomitant]
  9. SEPTRA [Concomitant]

REACTIONS (9)
  - CAESAREAN SECTION [None]
  - CARDIAC DISORDER [None]
  - CLEFT PALATE [None]
  - CONGENITAL CENTRAL NERVOUS SYSTEM ANOMALY [None]
  - DEAFNESS CONGENITAL [None]
  - DEATH NEONATAL [None]
  - DYSMORPHISM [None]
  - MATERNAL DRUGS AFFECTING FOETUS [None]
  - PREMATURE BABY [None]
